FAERS Safety Report 17808349 (Version 2)
Quarter: 2020Q3

REPORT INFORMATION
  Report Type: Report from Study
  Country: IN (occurrence: IN)
  Receive Date: 20200520
  Receipt Date: 20200717
  Transmission Date: 20201102
  Serious: Yes (Other)
  Sender: FDA-Public Use
  Company Number: NVSC2020IN056812

PATIENT
  Age: 41 Year
  Sex: Female
  Weight: 51 kg

DRUGS (1)
  1. GALVUS MET [Suspect]
     Active Substance: METFORMIN HYDROCHLORIDE\VILDAGLIPTIN
     Indication: TYPE 2 DIABETES MELLITUS
     Dosage: 1 DF, BID (50/500, 2 YEAR BACK)
     Route: 048

REACTIONS (10)
  - Palpitations [Unknown]
  - Weight decreased [Unknown]
  - Blood glucose fluctuation [Unknown]
  - Hunger [Unknown]
  - Micturition disorder [Unknown]
  - Blood cholesterol abnormal [Unknown]
  - Eye pruritus [Not Recovered/Not Resolved]
  - Visual impairment [Unknown]
  - Hyperglycaemia [Unknown]
  - Thyroid disorder [Unknown]

NARRATIVE: CASE EVENT DATE: 202001
